FAERS Safety Report 8249426-9 (Version None)
Quarter: 2012Q1

REPORT INFORMATION
  Report Type: 
  Country: None (occurrence: None)
  Receive Date: 20120322
  Receipt Date: 20120319
  Transmission Date: 20120608
  Serious: Yes (Hospitalization, Other)
  Sender: FDA-Public Use
  Company Number: 2012030979

PATIENT
  Age: 42 Year
  Sex: Female
  Weight: 69.8539 kg

DRUGS (13)
  1. HIZENTRA [Suspect]
  2. PRAVASTATIN [Concomitant]
  3. BACTRIM [Concomitant]
  4. HIZENTRA [Suspect]
  5. HIZENTRA [Suspect]
  6. HIZENTRA [Suspect]
     Indication: IMMUNODEFICIENCY COMMON VARIABLE
     Dosage: SEE IMAGE
     Route: 058
     Dates: start: 20120218, end: 20120218
  7. HIZENTRA [Suspect]
     Indication: IMMUNODEFICIENCY COMMON VARIABLE
     Dosage: SEE IMAGE
     Route: 058
     Dates: start: 20111208, end: 20111208
  8. HIZENTRA [Suspect]
     Indication: IMMUNODEFICIENCY COMMON VARIABLE
     Dosage: SEE IMAGE
     Route: 058
     Dates: start: 20111130
  9. SEREVENT [Concomitant]
  10. SINGULAIR [Concomitant]
  11. PREDNISONE TAB [Concomitant]
  12. ACETAMINOPHEN [Concomitant]
  13. XOPENEX [Concomitant]

REACTIONS (4)
  - RASH [None]
  - RESPIRATORY TRACT INFECTION [None]
  - SINUSITIS [None]
  - SKIN INFECTION [None]
